FAERS Safety Report 9699891 (Version 3)
Quarter: 2014Q1

REPORT INFORMATION
  Report Type: Spontaneous
  Country: IT (occurrence: IT)
  Receive Date: 20131121
  Receipt Date: 20140124
  Transmission Date: 20141002
  Serious: Yes (Hospitalization)
  Sender: FDA-Public Use
  Company Number: PHHY2013IT131367

PATIENT
  Sex: Female

DRUGS (1)
  1. TICLOPIDINE [Suspect]
     Dates: start: 20100101, end: 20131008

REACTIONS (1)
  - Subdural haematoma [Recovering/Resolving]
